FAERS Safety Report 8286571-6 (Version None)
Quarter: 2012Q2

REPORT INFORMATION
  Report Type: 
  Country: None (occurrence: None)
  Receive Date: 20120411
  Receipt Date: 20120323
  Transmission Date: 20120825
  Serious: Yes (Death)
  Sender: FDA-Public Use
  Company Number: JPI-P-018387

PATIENT
  Age: 66 Year
  Sex: Male

DRUGS (9)
  1. CLOMIPRAMINE HYDROCHLORIDE [Concomitant]
  2. XYREM [Suspect]
     Indication: CATAPLEXY
     Dosage: SEE IMAGE: ORAL
     Route: 048
     Dates: start: 20070927, end: 20071024
  3. XYREM [Suspect]
     Indication: CATAPLEXY
     Dosage: SEE IMAGE: ORAL
     Route: 048
     Dates: start: 20071025, end: 20080605
  4. XYREM [Suspect]
     Indication: CATAPLEXY
     Dosage: SEE IMAGE: ORAL
     Route: 048
     Dates: start: 20080606, end: 20090401
  5. XYREM [Suspect]
     Indication: CATAPLEXY
     Dosage: SEE IMAGE: ORAL
     Route: 048
     Dates: start: 20090501, end: 20110929
  6. XYREM [Suspect]
     Indication: CATAPLEXY
     Dosage: SEE IMAGE: ORAL
     Route: 048
     Dates: start: 20070731, end: 20070829
  7. XYREM [Suspect]
     Indication: CATAPLEXY
     Dosage: SEE IMAGE: ORAL
     Route: 048
     Dates: start: 20090401, end: 20090501
  8. XYREM [Suspect]
     Indication: CATAPLEXY
     Dosage: SEE IMAGE: ORAL
     Route: 048
     Dates: start: 20070830, end: 20070926
  9. MODAFINIL [Concomitant]

REACTIONS (1)
  - LARYNGEAL NEOPLASM [None]
